FAERS Safety Report 7032916-4 (Version None)
Quarter: 2010Q4

REPORT INFORMATION
  Report Type: 
  Country: None (occurrence: None)
  Receive Date: 20101007
  Receipt Date: 20100928
  Transmission Date: 20110411
  Serious: Yes (Life-Threatening, Hospitalization, Other)
  Sender: FDA-Public Use
  Company Number: GB-JNJFOC-20100800056

PATIENT
  Age: 72 Year
  Sex: Female

DRUGS (18)
  1. TRAMADOL HYDROCHLORIDE [Suspect]
     Indication: PAIN
     Route: 048
  2. MORPHINE [Interacting]
     Indication: PAIN
     Route: 058
  3. MS CONTIN [Interacting]
     Indication: PAIN
     Route: 065
  4. ORAMORPH SR [Interacting]
     Indication: PAIN
     Route: 065
  5. ORAMORPH SR [Interacting]
     Route: 065
  6. ATORVASTATIN [Concomitant]
  7. BUMETANIDE [Concomitant]
  8. FOLIC ACID [Concomitant]
  9. GLICLAZIDE [Concomitant]
  10. LISINOPRIL [Concomitant]
  11. MIRTAZAPINE [Concomitant]
  12. NOVOMIX [Concomitant]
  13. NOVORAPID [Concomitant]
  14. PARACETAMOL [Concomitant]
  15. PRAZOSIN HYDROCHLORIDE [Concomitant]
  16. LIDOCAINE/PRILOCAINE [Concomitant]
  17. DEXTRAN 70 [Concomitant]
  18. VISCOTEARS [Concomitant]

REACTIONS (11)
  - BREATH SOUNDS ABNORMAL [None]
  - C-REACTIVE PROTEIN INCREASED [None]
  - DRUG INTERACTION [None]
  - NARCOTIC INTOXICATION [None]
  - POTENTIATING DRUG INTERACTION [None]
  - PURULENT DISCHARGE [None]
  - RESPIRATORY ACIDOSIS [None]
  - RESPIRATORY ARREST [None]
  - SOMNOLENCE [None]
  - URINE OUTPUT DECREASED [None]
  - WHITE BLOOD CELL COUNT INCREASED [None]
